FAERS Safety Report 8886666 (Version 1)
Quarter: 2012Q4

REPORT INFORMATION
  Report Type: 
  Country: FR (occurrence: FR)
  Receive Date: 20121105
  Receipt Date: 20121105
  Transmission Date: 20130627
  Serious: Yes (Hospitalization)
  Sender: FDA-Public Use
  Company Number: PHHY2012FR100284

PATIENT

DRUGS (10)
  1. RIMACTANE [Suspect]
     Indication: STAPHYLOCOCCAL INFECTION
     Route: 048
     Dates: start: 20120718, end: 20120801
  2. TAVANIC [Suspect]
     Indication: STAPHYLOCOCCAL INFECTION
     Dosage: 500 mg, BID
     Route: 048
     Dates: start: 20120718, end: 20121013
  3. BISOPROLOL [Concomitant]
     Dosage: 2 DF in the morning
  4. METFORMIN [Concomitant]
     Dosage: 1 DF, TID
  5. AMIODARONE [Concomitant]
     Dosage: 2 DF in the morning
  6. PERINDOPRIL [Concomitant]
     Dosage: 1 DF in the morning
  7. LAMALINE [Concomitant]
     Dosage: 1 DF, QID
  8. EUPANTOL [Concomitant]
     Dosage: 40 mg/day evening
  9. TAHOR [Concomitant]
     Dosage: 80 mg/day in morning
  10. LOVENOX [Concomitant]
     Dosage: 1 DF/day in morning

REACTIONS (2)
  - Candidiasis [Recovered/Resolved]
  - Purpura [Recovered/Resolved]
